FAERS Safety Report 5239661-6 (Version None)
Quarter: 2007Q1

REPORT INFORMATION
  Report Type: 
  Country: None (occurrence: None)
  Receive Date: 20070216
  Receipt Date: 20070213
  Transmission Date: 20070707
  Serious: Yes (Hospitalization)
  Sender: FDA-Public Use
  Company Number: ES-MERCK-0702ESP00027

PATIENT
  Age: 31 Year
  Sex: Male

DRUGS (2)
  1. SINGULAIR [Suspect]
     Route: 048
  2. CORTICOSTEROIDS (UNSPECIFIED) [Concomitant]

REACTIONS (1)
  - ALLERGIC GRANULOMATOUS ANGIITIS [None]
